FAERS Safety Report 7289992-3 (Version None)
Quarter: 2011Q1

REPORT INFORMATION
  Report Type: 
  Country: None (occurrence: None)
  Receive Date: 20110202
  Receipt Date: 20110112
  Transmission Date: 20110831
  Serious: Yes (Other)
  Sender: FDA-Public Use
  Company Number: JPI-P-013526

PATIENT
  Age: 65 Year
  Sex: Male

DRUGS (3)
  1. FLUOXETINE [Suspect]
     Indication: PRODUCT USED FOR UNKNOWN INDICATION
     Dosage: (40 MG)
  2. XYREM [Suspect]
     Indication: CATAPLEXY
     Dosage: SEE IMAGE
     Route: 048
  3. ORAL HYPOGLYCEMIC AGENTS [Concomitant]

REACTIONS (5)
  - PARAESTHESIA [None]
  - WEIGHT DECREASED [None]
  - CONVULSION [None]
  - SNORING [None]
  - CATAPLEXY [None]
